FAERS Safety Report 20290687 (Version 1)
Quarter: 2022Q1

REPORT INFORMATION
  Report Type: Spontaneous
  Country: US (occurrence: US)
  Receive Date: 20220104
  Receipt Date: 20220104
  Transmission Date: 20220423
  Serious: No
  Sender: FDA-Public Use
  Company Number: US-GALDERMA-US2021020195

PATIENT

DRUGS (4)
  1. PROACTIV MD ADAPALENE ACNE TREATMENT [Suspect]
     Active Substance: ADAPALENE
     Indication: Acne
     Dosage: 1 DOSAGE FORM, QD, AT NIGHT
     Route: 061
     Dates: start: 202110, end: 202112
  2. Proactiv MD Ultra Gentle Cleanser [Concomitant]
     Indication: Acne
     Dosage: 1 DOSAGE FORM, BID, MORNING AND NIGHT
     Route: 061
     Dates: start: 202110, end: 202112
  3. Proactiv MD Ultra Hydrating Moisturizer [Concomitant]
     Indication: Acne
     Dosage: 1 DOSAGE FORM, BID, MORNING AND NIGHT
     Route: 061
     Dates: start: 202110, end: 202112
  4. Proactiv Amazonian Clay Mask [Concomitant]
     Indication: Acne
     Dosage: 1 DOSAGE FORM, BID, MORNING AND NIGHT
     Route: 061
     Dates: start: 202110, end: 202112

REACTIONS (2)
  - Acne [Recovering/Resolving]
  - Drug ineffective [Unknown]

NARRATIVE: CASE EVENT DATE: 20211101
